FAERS Safety Report 4582091-0 (Version None)
Quarter: 2005Q1

REPORT INFORMATION
  Report Type: 
  Country: None (occurrence: None)
  Receive Date: 20050119
  Receipt Date: 20040630
  Transmission Date: 20050727
  Serious: Yes (Hospitalization)
  Sender: FDA-Public Use
  Company Number: A03200402141

PATIENT
  Age: 82 Year
  Sex: Female
  Weight: 72.5755 kg

DRUGS (6)
  1. PLAVIX [Suspect]
     Indication: CAROTID ARTERY OCCLUSION
     Dosage: 75 MG QD -ORAL
     Route: 048
     Dates: start: 20040401, end: 20040506
  2. ASPIRIN [Suspect]
     Indication: CAROTID ARTERY OCCLUSION
     Dosage: 81 MG QD- ORAL
     Route: 048
     Dates: start: 20040401, end: 20040506
  3. IBUPROFEN [Concomitant]
  4. OMEPRAZOLE [Concomitant]
  5. AMITRIPTYLINE HYDROCHLORIDE [Concomitant]
  6. LYSINE [Concomitant]

REACTIONS (6)
  - ATRIAL FIBRILLATION [None]
  - CONTUSION [None]
  - GASTROINTESTINAL HAEMORRHAGE [None]
  - HAEMATEMESIS [None]
  - HAEMORRHAGE [None]
  - NAUSEA [None]
